FAERS Safety Report 9701448 (Version 2)
Quarter: 2013Q4

REPORT INFORMATION
  Report Type: Spontaneous
  Country: US (occurrence: US)
  Receive Date: 20131121
  Receipt Date: 20131121
  Transmission Date: 20140711
  Serious: No
  Sender: FDA-Public Use
  Company Number: US-GILEAD-2008-0016624

PATIENT
  Age: 60 Year
  Sex: Female
  Weight: 80.29 kg

DRUGS (15)
  1. LETAIRIS [Suspect]
     Indication: PULMONARY ARTERIAL HYPERTENSION
     Route: 048
     Dates: start: 20071201
  2. AVAPRO [Concomitant]
     Route: 048
  3. ZEBETA [Concomitant]
     Route: 048
  4. PLAVIX [Concomitant]
     Route: 048
  5. ZETIA [Concomitant]
     Route: 048
  6. RANEXA [Concomitant]
     Route: 048
  7. LASIX [Concomitant]
     Route: 048
  8. ASPIRIN [Concomitant]
     Route: 048
  9. ALEVE [Concomitant]
     Route: 048
  10. RESTORIL [Concomitant]
     Route: 048
  11. PEPCID AC [Concomitant]
     Route: 048
  12. CALCIUM + D [Concomitant]
     Route: 048
  13. MAG OX [Concomitant]
     Route: 048
  14. POTASSIUM CHLORIDE [Concomitant]
     Route: 048
  15. FISH OIL [Concomitant]
     Route: 048

REACTIONS (1)
  - Visual impairment [Not Recovered/Not Resolved]
